FAERS Safety Report 14074968 (Version 1)
Quarter: 2017Q4

REPORT INFORMATION
  Report Type: Spontaneous
  Country: US (occurrence: US)
  Receive Date: 20171011
  Receipt Date: 20171011
  Transmission Date: 20180321
  Serious: No
  Sender: FDA-Public Use
  Company Number: US-MISSION PHARMACAL COMPANY-2029611

PATIENT
  Age: 68 Year
  Sex: Female

DRUGS (2)
  1. THIOLA [Concomitant]
     Active Substance: TIOPRONIN
     Route: 065
     Dates: start: 20170910
  2. POTASSIUM CITRATE. [Suspect]
     Active Substance: POTASSIUM CITRATE
     Indication: CYSTINURIA
     Route: 065

REACTIONS (2)
  - Complication associated with device [Unknown]
  - Abdominal discomfort [Unknown]
